FAERS Safety Report 4266591-9 (Version None)
Quarter: 2004Q1

REPORT INFORMATION
  Report Type: 
  Country: None (occurrence: None)
  Receive Date: 20040108
  Receipt Date: 20031230
  Transmission Date: 20041129
  Serious: Yes (Hospitalization)
  Sender: FDA-Public Use
  Company Number: US-BRISTOL-MYERS SQUIBB COMPANY-12466793

PATIENT
  Age: 72 Year
  Sex: Female

DRUGS (4)
  1. PRAVACHOL [Suspect]
     Indication: HYPERLIPIDAEMIA
     Route: 048
     Dates: start: 20031003
  2. AVALIDE [Concomitant]
  3. ATENOLOL [Concomitant]
  4. ASPIRIN [Concomitant]

REACTIONS (4)
  - ABDOMINAL DISTENSION [None]
  - FLATULENCE [None]
  - HEPATIC ENZYME INCREASED [None]
  - JAUNDICE [None]
